FAERS Safety Report 5471030-6 (Version None)
Quarter: 2007Q3

REPORT INFORMATION
  Report Type: 
  Country: None (occurrence: None)
  Receive Date: 20070928
  Receipt Date: 20070920
  Transmission Date: 20080115
  Serious: Yes (Hospitalization)
  Sender: FDA-Public Use
  Company Number: B0488457A

PATIENT
  Age: 37 Year
  Sex: Female

DRUGS (6)
  1. ZOFRAN [Suspect]
     Indication: PREMEDICATION
     Dosage: 8MG SINGLE DOSE
     Route: 042
     Dates: start: 20070807, end: 20070807
  2. CETUXIMAB [Suspect]
     Dosage: 850MG SINGLE DOSE
     Route: 042
     Dates: start: 20070807, end: 20070807
  3. ELOXATIN [Suspect]
     Dosage: 145MG SINGLE DOSE
     Route: 042
     Dates: start: 20070807, end: 20070807
  4. FLUOROURACIL [Suspect]
     Route: 042
     Dates: start: 20070807, end: 20070807
  5. SOLU-MEDROL [Suspect]
     Indication: PREMEDICATION
     Dosage: 80MG SINGLE DOSE
     Route: 042
     Dates: start: 20070807, end: 20070807
  6. POLARAMINE [Suspect]
     Indication: PREMEDICATION
     Dosage: 2.5MG SINGLE DOSE
     Route: 042
     Dates: start: 20070807, end: 20070807

REACTIONS (3)
  - DIPLOPIA [None]
  - EYE DISORDER [None]
  - LARYNGEAL DYSPNOEA [None]
